FAERS Safety Report 5766704-3 (Version None)
Quarter: 2008Q2

REPORT INFORMATION
  Report Type: 
  Country: None (occurrence: None)
  Receive Date: 20080610
  Receipt Date: 20080610
  Transmission Date: 20081010
  Serious: Yes (Other)
  Sender: FDA-Public Use
  Company Number: None

PATIENT
  Age: 74 Year
  Sex: Male
  Weight: 85.2762 kg

DRUGS (2)
  1. LOTREL [Suspect]
     Indication: HYPERTENSION
     Dosage: 10/40 DAILY PO
     Route: 048
     Dates: start: 20060103, end: 20070303
  2. HYZAAR [Suspect]
     Indication: CORONARY ARTERY DISEASE
     Dosage: 100/25 DAILY PO
     Route: 048
     Dates: start: 20041123, end: 20050328

REACTIONS (2)
  - BLOOD PRESSURE INCREASED [None]
  - DEVICE INEFFECTIVE [None]
